FAERS Safety Report 4469678-0 (Version None)
Quarter: 2004Q4

REPORT INFORMATION
  Report Type: 
  Country: None (occurrence: None)
  Receive Date: 20041008
  Receipt Date: 20031211
  Transmission Date: 20050328
  Serious: Yes (Hospitalization)
  Sender: FDA-Public Use
  Company Number: FR-MERCK-0312FRA00040

PATIENT
  Age: 54 Year
  Sex: Male
  Weight: 103 kg

DRUGS (9)
  1. ACETAMINOPHEN [Concomitant]
     Route: 065
  2. INFLIXIMAB [Suspect]
     Route: 042
     Dates: start: 20020211, end: 20030521
  3. ISRADIPINE [Concomitant]
     Route: 048
  4. LEFLUNOMIDE [Concomitant]
     Route: 048
     Dates: start: 20020615
  5. OMEPRAZOLE [Concomitant]
     Route: 065
  6. PREDNISONE [Suspect]
     Route: 065
  7. VIOXX [Suspect]
     Indication: RHEUMATOID ARTHRITIS
     Route: 048
     Dates: end: 20030919
  8. VIOXX [Suspect]
     Route: 048
     Dates: start: 20030101
  9. TRAMADOL HYDROCHLORIDE [Concomitant]
     Route: 048

REACTIONS (7)
  - ABSCESS LIMB [None]
  - ANGINA PECTORIS [None]
  - ARTHRITIS BACTERIAL [None]
  - BACTERIAL INFECTION [None]
  - BETA HAEMOLYTIC STREPTOCOCCAL INFECTION [None]
  - POSTOPERATIVE INFECTION [None]
  - STAPHYLOCOCCAL INFECTION [None]
